FAERS Safety Report 5819565-8 (Version None)
Quarter: 2008Q3

REPORT INFORMATION
  Report Type: 
  Country: None (occurrence: None)
  Receive Date: 20080723
  Receipt Date: 20080716
  Transmission Date: 20090109
  Serious: Yes (Other)
  Sender: FDA-Public Use
  Company Number: GB-ABBOTT-08P-167-0463364-00

PATIENT
  Age: 35 Year
  Sex: Male

DRUGS (2)
  1. VALPROATE SODIUM [Suspect]
     Indication: MYOCLONIC EPILEPSY
     Route: 048
     Dates: start: 19880101
  2. SULFASALAZINE [Concomitant]
     Indication: COLITIS ULCERATIVE

REACTIONS (1)
  - INFERTILITY MALE [None]
